FAERS Safety Report 10342484 (Version 2)
Quarter: 2014Q4

REPORT INFORMATION
  Report Type: Spontaneous
  Country: US (occurrence: US)
  Receive Date: 20140725
  Receipt Date: 20141006
  Transmission Date: 20150528
  Serious: Yes (Hospitalization, Other)
  Sender: FDA-Public Use
  Company Number: US-ELI_LILLY_AND_COMPANY-US201407005988

PATIENT
  Age: 61 Year
  Sex: Female

DRUGS (1)
  1. HUMALOG [Suspect]
     Active Substance: INSULIN LISPRO
     Indication: TYPE 1 DIABETES MELLITUS
     Dosage: UNK
     Route: 058
     Dates: start: 201405

REACTIONS (11)
  - Memory impairment [Unknown]
  - Renal impairment [Unknown]
  - Weight increased [Unknown]
  - Hypoglycaemic unconsciousness [Recovered/Resolved]
  - Contusion [Unknown]
  - Blood glucose decreased [Unknown]
  - Lethargy [Unknown]
  - Blood glucose decreased [Recovered/Resolved]
  - Speech disorder [Unknown]
  - Movement disorder [Unknown]
  - Muscle disorder [Unknown]

NARRATIVE: CASE EVENT DATE: 20140712
